FAERS Safety Report 6058894-2 (Version None)
Quarter: 2009Q1

REPORT INFORMATION
  Report Type: 
  Country: None (occurrence: None)
  Receive Date: 20090128
  Receipt Date: 20090128
  Transmission Date: 20090719
  Serious: No
  Sender: FDA-Public Use
  Company Number: None

PATIENT
  Age: 49 Year
  Sex: Female
  Weight: 54.4316 kg

DRUGS (2)
  1. NAPROXEN [Suspect]
     Indication: INFLAMMATION
     Dosage: 125 MG 1 TO 2 TIMES A DAY
     Dates: start: 20090112, end: 20090124
  2. NAPROXEN [Suspect]
     Indication: PAIN
     Dosage: 125 MG 1 TO 2 TIMES A DAY
     Dates: start: 20090112, end: 20090124

REACTIONS (1)
  - EYE HAEMORRHAGE [None]
